FAERS Safety Report 8893367 (Version 1)
Quarter: 2012Q4

REPORT INFORMATION
  Report Type: 
  Country: US (occurrence: US)
  Receive Date: 20121108
  Receipt Date: 20121108
  Transmission Date: 20130627
  Serious: No
  Sender: FDA-Public Use
  Company Number: US-009507513-1211USA002117

PATIENT
  Sex: Male

DRUGS (1)
  1. SINGULAIR [Suspect]
     Indication: ASTHMA
     Dosage: UNK
     Route: 048
     Dates: start: 201012

REACTIONS (7)
  - Sleep disorder [Recovering/Resolving]
  - Disturbance in attention [Recovering/Resolving]
  - Aggression [Recovering/Resolving]
  - Depressed mood [Recovering/Resolving]
  - Abnormal behaviour [Recovering/Resolving]
  - Anger [Recovering/Resolving]
  - Tremor [Recovering/Resolving]
